FAERS Safety Report 6897806-6 (Version None)
Quarter: 2010Q3

REPORT INFORMATION
  Report Type: 
  Country: None (occurrence: None)
  Receive Date: 20100802
  Receipt Date: 20070808
  Transmission Date: 20110219
  Serious: No
  Sender: FDA-Public Use
  Company Number: US-PFIZER INC-2007053043

PATIENT
  Sex: Male
  Weight: 72.57 kg

DRUGS (8)
  1. LYRICA [Suspect]
     Indication: SCIATICA
     Dates: start: 20070626
  2. FENTANYL [Suspect]
     Indication: SCIATICA
     Dosage: 2 EVERY 1 WEEKS
     Dates: start: 20070601
  3. VITAMINS [Concomitant]
  4. GLYCOPYRROLATE [Concomitant]
  5. NEXIUM [Concomitant]
  6. MONTELUKAST SODIUM [Concomitant]
  7. HYDROCODONE BITARTRATE [Concomitant]
  8. EFFEXOR [Concomitant]

REACTIONS (7)
  - ABDOMINAL DISTENSION [None]
  - DECREASED APPETITE [None]
  - DRY MOUTH [None]
  - FEELING ABNORMAL [None]
  - LETHARGY [None]
  - TINNITUS [None]
  - VASODILATATION [None]
